FAERS Safety Report 5624008-3 (Version None)
Quarter: 2008Q1

REPORT INFORMATION
  Report Type: 
  Country: None (occurrence: None)
  Receive Date: 20080208
  Receipt Date: 20080208
  Transmission Date: 20080703
  Serious: No
  Sender: FDA-Public Use
  Company Number: None

PATIENT
  Sex: Female
  Weight: 68 kg

DRUGS (6)
  1. BEVACIZUMAB (RHUMAB VEGF) [Suspect]
     Dosage: 660 MG
     Dates: end: 20080102
  2. LEUCOVORIN CALCIUM [Suspect]
     Dosage: 2842 MG
  3. ELOXATIN [Suspect]
     Dosage: 496 MG
  4. FLUOROURACIL [Suspect]
     Dosage: 16882 MG
  5. COUMADIN [Concomitant]
  6. METOPROLOL TARTRATE [Concomitant]

REACTIONS (4)
  - EPISTAXIS [None]
  - INTERNATIONAL NORMALISED RATIO DECREASED [None]
  - INTERNATIONAL NORMALISED RATIO INCREASED [None]
  - PROTHROMBIN TIME PROLONGED [None]
